FAERS Safety Report 14052186 (Version 1)
Quarter: 2017Q4

REPORT INFORMATION
  Report Type: Spontaneous
  Country: US (occurrence: US)
  Receive Date: 20171006
  Receipt Date: 20171006
  Transmission Date: 20180321
  Serious: No
  Sender: FDA-Public Use
  Company Number: US-PFIZER INC-2017428254

PATIENT
  Age: 56 Year
  Sex: Female
  Weight: 49.9 kg

DRUGS (2)
  1. RAPAMUNE [Suspect]
     Active Substance: SIROLIMUS
     Indication: RENAL TRANSPLANT
     Dosage: 2MG TABLET, ONCE A DAY
     Route: 048
  2. CELLCEPT [Concomitant]
     Active Substance: MYCOPHENOLATE MOFETIL\MYCOPHENOLATE MOFETIL HYDROCHLORIDE
     Indication: TRANSPLANT REJECTION
     Dosage: 500MG TABLET, 2 A DAY BY MOUTH, ONCE IN THE MORNING AND ONE AT NIGHT
     Route: 048

REACTIONS (1)
  - Streptococcal infection [Recovering/Resolving]

NARRATIVE: CASE EVENT DATE: 20170926
